FAERS Safety Report 14709579 (Version 1)
Quarter: 2018Q2

REPORT INFORMATION
  Report Type: Report from Study
  Country: DE (occurrence: DE)
  Receive Date: 20180403
  Receipt Date: 20180403
  Transmission Date: 20180711
  Serious: Yes (Other)
  Sender: FDA-Public Use
  Company Number: DE-BAYER-2018-057310

PATIENT
  Age: 62 Year
  Sex: Male

DRUGS (1)
  1. BETAFERON [Suspect]
     Active Substance: INTERFERON BETA-1B
     Indication: MULTIPLE SCLEROSIS
     Dosage: 250 ?G, QOD
     Route: 058
     Dates: start: 19970101

REACTIONS (4)
  - Sepsis [Recovering/Resolving]
  - Fall [Recovered/Resolved]
  - Injection site abscess [Recovering/Resolving]
  - Skin graft [Recovering/Resolving]

NARRATIVE: CASE EVENT DATE: 20171222
